FAERS Safety Report 16063777 (Version 2)
Quarter: 2019Q1

REPORT INFORMATION
  Report Type: Spontaneous
  Country: JP (occurrence: JP)
  Receive Date: 20190312
  Receipt Date: 20190321
  Transmission Date: 20190418
  Serious: Yes (Hospitalization, Other)
  Sender: FDA-Public Use
  Company Number: JP-BAYER-2019-045470

PATIENT
  Age: 83 Year
  Sex: Male

DRUGS (2)
  1. NEXAVAR [Suspect]
     Active Substance: SORAFENIB
     Indication: HEPATOCELLULAR CARCINOMA
     Dosage: DAILY DOSE 400 MG
  2. STIVARGA [Suspect]
     Active Substance: REGORAFENIB
     Indication: HEPATOCELLULAR CARCINOMA
     Dosage: ON FOR 3 WEEKS AND OFF FOR 1 WEEK
     Route: 048
     Dates: start: 201808

REACTIONS (3)
  - Renal impairment [None]
  - Hepatocellular carcinoma [None]
  - Nephrotic syndrome [Not Recovered/Not Resolved]
